FAERS Safety Report 8215338-X (Version None)
Quarter: 2012Q1

REPORT INFORMATION
  Report Type: 
  Country: None (occurrence: None)
  Receive Date: 20120316
  Receipt Date: 20120313
  Transmission Date: 20120608
  Serious: Yes (Hospitalization, Other)
  Sender: FDA-Public Use
  Company Number: US-PFIZER INC-2012066580

PATIENT
  Sex: Male
  Weight: 81.633 kg

DRUGS (2)
  1. EFFEXOR XR [Suspect]
     Indication: ANXIETY
     Dosage: 150 MG, 1X/DAY
     Route: 048
     Dates: start: 20000101
  2. EFFEXOR XR [Suspect]
     Indication: DEPRESSION

REACTIONS (3)
  - FOOD ALLERGY [None]
  - MIGRAINE [None]
  - ARACHNOID CYST [None]
